FAERS Safety Report 7973826-5 (Version None)
Quarter: 2011Q4

REPORT INFORMATION
  Report Type: 
  Country: None (occurrence: None)
  Receive Date: 20111213
  Receipt Date: 20111201
  Transmission Date: 20120403
  Serious: Yes (Hospitalization, Other)
  Sender: FDA-Public Use
  Company Number: CA-ELI_LILLY_AND_COMPANY-CA201112000183

PATIENT
  Sex: Male

DRUGS (2)
  1. ZYPREXA [Suspect]
     Dosage: 5 MG, UNK
  2. ZYPREXA [Suspect]
     Dosage: 2.5 MG, UNK

REACTIONS (5)
  - MOBILITY DECREASED [None]
  - MYOCARDIAL INFARCTION [None]
  - DYSPHAGIA [None]
  - DIABETES MELLITUS [None]
  - CEREBROVASCULAR ACCIDENT [None]
